FAERS Safety Report 4404344-9 (Version None)
Quarter: 2004Q3

REPORT INFORMATION
  Report Type: 
  Country: None (occurrence: None)
  Receive Date: 20040714
  Receipt Date: 20040630
  Transmission Date: 20050211
  Serious: No
  Sender: FDA-Public Use
  Company Number: CART-10282

PATIENT
  Age: 54 Year
  Sex: Male

DRUGS (1)
  1. CARTICEL [Suspect]
     Indication: CHONDROPATHY
     Dosage: 1 NA ONCE IS
     Dates: start: 19980506, end: 19980506

REACTIONS (3)
  - FAILURE OF IMPLANT [None]
  - GRAFT COMPLICATION [None]
  - GRAFT OVERGROWTH [None]
